FAERS Safety Report 7434891-7 (Version None)
Quarter: 2011Q2

REPORT INFORMATION
  Report Type: 
  Country: None (occurrence: None)
  Receive Date: 20110425
  Receipt Date: 20110412
  Transmission Date: 20111010
  Serious: Yes (Death)
  Sender: FDA-Public Use
  Company Number: NZ-CELGENEUS-118-20785-11041204

PATIENT
  Sex: Male

DRUGS (2)
  1. STEROIDS [Concomitant]
     Indication: MULTIPLE MYELOMA
     Route: 065
  2. THALOMID [Suspect]
     Indication: MULTIPLE MYELOMA
     Dosage: 100 MILLIGRAM
     Route: 048
     Dates: start: 20100917

REACTIONS (2)
  - SEPTIC SHOCK [None]
  - MULTI-ORGAN FAILURE [None]
